FAERS Safety Report 7915245 (Version 10)
Quarter: 2012Q4

REPORT INFORMATION
  Report Type: 
  Country: CA (occurrence: CA)
  Receive Date: 20110426
  Receipt Date: 20121111
  Transmission Date: 20130627
  Serious: Yes (Other)
  Sender: FDA-Public Use
  Company Number: PHHY2009CA16890

PATIENT
  Sex: Male

DRUGS (12)
  1. SANDOSTATIN LAR [Suspect]
     Indication: ACROMEGALY
     Dosage: 20 mg, QMO
     Route: 030
     Dates: start: 20060213
  2. SANDOSTATIN LAR [Suspect]
     Dosage: 20 mg every 4 weeks
     Route: 030
  3. SANDOSTATIN LAR [Suspect]
     Dosage: 20 mg, QMO
     Route: 030
  4. SANDOSTATIN LAR [Suspect]
     Dosage: 20 mg, every 4 weeks
     Route: 030
  5. SANDOSTATIN LAR [Suspect]
     Dosage: 20 mg, QMO
     Route: 030
  6. ACEBUTOLOL [Concomitant]
  7. ADALAT XL [Concomitant]
  8. ATACAND [Concomitant]
  9. HYDROCHLOORTHIAZIDE [Concomitant]
  10. LIPITOR [Concomitant]
  11. METFORMIN HCL [Concomitant]
  12. VERAPAMIL [Concomitant]

REACTIONS (11)
  - Blood pressure systolic increased [Unknown]
  - Lower respiratory tract infection [Unknown]
  - Pharyngitis [Recovering/Resolving]
  - Nasopharyngitis [Unknown]
  - Stress [Unknown]
  - Weight decreased [Unknown]
  - Eating disorder [Unknown]
  - Injection site pain [Recovered/Resolved]
  - Blood growth hormone increased [Unknown]
  - Insulin-like growth factor increased [Unknown]
  - Diarrhoea [Unknown]
